FAERS Safety Report 9686445 (Version 1)
Quarter: 2013Q4

REPORT INFORMATION
  Report Type: Spontaneous
  Country: NZ (occurrence: None)
  Receive Date: 20131108
  Receipt Date: 20131108
  Transmission Date: 20140711
  Serious: Yes (Hospitalization)
  Sender: FDA-Public Use
  Company Number: 2013AP009522

PATIENT
  Age: 51 Year
  Sex: Female

DRUGS (2)
  1. CITALOPRAM [Suspect]
     Route: 048
  2. QUETIAPINE [Suspect]
     Route: 048

REACTIONS (4)
  - Intentional overdose [None]
  - Hypothermia [None]
  - Suicide attempt [None]
  - Electrocardiogram abnormal [None]
